FAERS Safety Report 22039362 (Version 1)
Quarter: 2023Q1

REPORT INFORMATION
  Report Type: Report from Study
  Country: US (occurrence: US)
  Receive Date: 20230227
  Receipt Date: 20230227
  Transmission Date: 20230417
  Serious: Yes (Hospitalization, Other)
  Sender: FDA-Public Use
  Company Number: US-GLAXOSMITHKLINE-US2022AMR180700

PATIENT

DRUGS (3)
  1. NIRAPARIB [Suspect]
     Active Substance: NIRAPARIB
     Indication: Ovarian cancer
     Dosage: 100 MG, QD
     Dates: start: 202110
  2. NIRAPARIB [Suspect]
     Active Substance: NIRAPARIB
     Dosage: 200 MG, QD
     Dates: start: 20230220
  3. SODIUM CHLORIDE [Suspect]
     Active Substance: SODIUM CHLORIDE
     Indication: Product used for unknown indication
     Dosage: UNK, INFUSION, SALINE
     Route: 042

REACTIONS (7)
  - Adverse drug reaction [Unknown]
  - Fall [Unknown]
  - Hip fracture [Unknown]
  - COVID-19 [Not Recovered/Not Resolved]
  - Transfusion [Unknown]
  - Loss of personal independence in daily activities [Unknown]
  - Off label use [Unknown]

NARRATIVE: CASE EVENT DATE: 20211001
